FAERS Safety Report 9769603 (Version 2)
Quarter: 2013Q4

REPORT INFORMATION
  Report Type: Spontaneous
  Country: US (occurrence: US)
  Receive Date: 20131218
  Receipt Date: 20131227
  Transmission Date: 20140711
  Serious: No
  Sender: FDA-Public Use
  Company Number: US-TEVA-450223USA

PATIENT
  Age: 82 Year
  Sex: Female
  Weight: 102.6 kg

DRUGS (2)
  1. PROAIR HFA [Suspect]
     Indication: ASTHMA
     Dates: start: 201311
  2. PROAIR HFA [Suspect]
     Indication: DYSPNOEA

REACTIONS (1)
  - Drug effect decreased [Recovered/Resolved]
